FAERS Safety Report 8180405-6 (Version None)
Quarter: 2012Q1

REPORT INFORMATION
  Report Type: 
  Country: None (occurrence: None)
  Receive Date: 20120229
  Receipt Date: 20120223
  Transmission Date: 20120608
  Serious: Yes (Death, Hospitalization, Other)
  Sender: FDA-Public Use
  Company Number: WAES 1106USA04373

PATIENT
  Age: 71 Year
  Sex: Male

DRUGS (11)
  1. LANSOYL [Concomitant]
  2. OVOL [Concomitant]
  3. OXYGEN [Concomitant]
  4. LOPERAMIDE HCL [Concomitant]
  5. SODIUM CHLORIDE [Concomitant]
  6. CAP VORINOSTAT [Suspect]
     Indication: MULTIPLE MYELOMA
     Dosage: 300 MG/DAILY PO
     Route: 048
     Dates: start: 20100820, end: 20110620
  7. PROCHLORPERAZINE [Concomitant]
  8. PAMIDRONATE DISODIUM [Concomitant]
  9. METAMUCIL-2 [Concomitant]
  10. OXYCONTIN [Concomitant]
  11. OXYCODONE HCL [Concomitant]

REACTIONS (1)
  - RESPIRATORY TRACT INFECTION [None]
